FAERS Safety Report 9824508 (Version 2)
Quarter: 2014Q1

REPORT INFORMATION
  Report Type: Spontaneous
  Country: US (occurrence: US)
  Receive Date: 20140116
  Receipt Date: 20140212
  Transmission Date: 20141002
  Serious: Yes (Other)
  Sender: FDA-Public Use
  Company Number: US-AMGEN-USASP2014002381

PATIENT
  Age: 80 Year
  Sex: Female

DRUGS (1)
  1. EPOGEN [Suspect]
     Indication: ANAEMIA
     Dosage: 100 MUG, QWK
     Route: 065

REACTIONS (2)
  - Hip fracture [Unknown]
  - Refractory cytopenia with unilineage dysplasia [Unknown]
